FAERS Safety Report 9680045 (Version 2)
Quarter: 2013Q4

REPORT INFORMATION
  Report Type: Spontaneous
  Country: US (occurrence: US)
  Receive Date: 20131110
  Receipt Date: 20131110
  Transmission Date: 20140711
  Serious: No
  Sender: FDA-Public Use
  Company Number: US-SA-MIPO-1000477

PATIENT
  Age: 74 Year
  Sex: Female

DRUGS (1)
  1. MIPOMERSEN [Suspect]
     Indication: TYPE IIA HYPERLIPIDAEMIA
     Dosage: UNK
     Route: 059
     Dates: start: 20130705

REACTIONS (1)
  - Injection site reaction [Recovered/Resolved]
